FAERS Safety Report 20391223 (Version 1)
Quarter: 2022Q1

REPORT INFORMATION
  Report Type: Spontaneous
  Country: US (occurrence: US)
  Receive Date: 20220128
  Receipt Date: 20220128
  Transmission Date: 20220423
  Serious: No
  Sender: FDA-Public Use
  Company Number: US-ALLERGAN-2126863US

PATIENT
  Sex: Female
  Weight: 67.1 kg

DRUGS (5)
  1. FML [Suspect]
     Active Substance: FLUOROMETHOLONE
     Indication: Dry eye
     Route: 047
  2. FML [Suspect]
     Active Substance: FLUOROMETHOLONE
     Indication: Eye inflammation
  3. INVELTYS [Suspect]
     Active Substance: LOTEPREDNOL ETABONATE
     Indication: Dry eye
     Dosage: 1 DROP, 2X/DAY (IN THE MORNING AND AT NIGHT) IN BOTH EYES (^AS
     Route: 047
  4. INVELTYS [Suspect]
     Active Substance: LOTEPREDNOL ETABONATE
     Indication: Eye inflammation
     Dosage: ONE DROP IN BOTH EYES IN THE MORNING AND ONE DROP IN BOTH EYES AT
     Route: 047
     Dates: start: 202103
  5. UNSPECIFIED INGREDIENT [Suspect]
     Active Substance: UNSPECIFIED INGREDIENT
     Indication: Dry eye
     Dosage: UNK
     Route: 047

REACTIONS (3)
  - Visual impairment [Unknown]
  - Eye irritation [Unknown]
  - Eye pain [Unknown]
